FAERS Safety Report 7665146-3 (Version None)
Quarter: 2011Q3

REPORT INFORMATION
  Report Type: 
  Country: None (occurrence: None)
  Receive Date: 20110806
  Receipt Date: 20110502
  Transmission Date: 20111222
  Serious: No
  Sender: FDA-Public Use
  Company Number: US-ABBOTT-11P-163-0722961-00

PATIENT
  Sex: Male
  Weight: 101.7 kg

DRUGS (10)
  1. MAG OXIDE [Concomitant]
     Indication: PRODUCT USED FOR UNKNOWN INDICATION
  2. CRESTOR [Concomitant]
     Indication: PRODUCT USED FOR UNKNOWN INDICATION
  3. POTASSIUM CHLORIDE [Concomitant]
     Indication: PRODUCT USED FOR UNKNOWN INDICATION
  4. COREG [Concomitant]
     Indication: PRODUCT USED FOR UNKNOWN INDICATION
  5. ASPIRIN [Concomitant]
     Indication: PRODUCT USED FOR UNKNOWN INDICATION
  6. CLONIDINE [Concomitant]
     Indication: PRODUCT USED FOR UNKNOWN INDICATION
  7. NIASPAN [Suspect]
     Indication: HIGH DENSITY LIPOPROTEIN DECREASED
     Dosage: 500 MG DAILY AT BEDTIME
     Dates: start: 20101201
  8. QUINAPRIL HCL [Concomitant]
     Indication: PRODUCT USED FOR UNKNOWN INDICATION
  9. WARFARIN SODIUM [Concomitant]
     Indication: PRODUCT USED FOR UNKNOWN INDICATION
  10. ZALAPAN EYE DROPS [Concomitant]
     Indication: PRODUCT USED FOR UNKNOWN INDICATION
     Route: 047

REACTIONS (2)
  - FLUSHING [None]
  - DRUG INEFFECTIVE [None]
